FAERS Safety Report 5532028-2 (Version None)
Quarter: 2007Q4

REPORT INFORMATION
  Report Type: 
  Country: None (occurrence: None)
  Receive Date: 20071120
  Receipt Date: 20070718
  Transmission Date: 20080405
  Serious: No
  Sender: FDA-Public Use
  Company Number: WAES 0707USA03121

PATIENT
  Age: 50 Year
  Sex: Male

DRUGS (1)
  1. JANUVIA [Suspect]
     Dosage: 50 MG/BID/PO
     Route: 048

REACTIONS (2)
  - INAPPROPRIATE SCHEDULE OF DRUG ADMINISTRATION [None]
  - RASH [None]
